FAERS Safety Report 10717716 (Version 1)
Quarter: 2015Q1

REPORT INFORMATION
  Report Type: Report from Study
  Country: US (occurrence: US)
  Receive Date: 20150116
  Receipt Date: 20150116
  Transmission Date: 20150721
  Serious: Yes (Death)
  Sender: FDA-Public Use
  Company Number: US-BAXTER-2015BAX002884

PATIENT

DRUGS (3)
  1. ATROPINE [Suspect]
     Active Substance: ATROPINE
     Indication: CARDIAC STRESS TEST
     Dosage: UP TO 1.5 MG
     Route: 065
  2. DOBUTAMINE HYDROCHLORIDE IN DEXTROSE [Suspect]
     Active Substance: DEXTROSE MONOHYDRATE\DEXTROSE MONOHYDRATE\DOBUTAMINE HYDROCHLORIDE\DOBUTAMINE HYDROCHLORIDE
     Indication: OFF LABEL USE
     Dosage: PEAK STRESS UP TO 40 MCG/KG
     Route: 065
  3. DOBUTAMINE HYDROCHLORIDE IN DEXTROSE [Suspect]
     Active Substance: DEXTROSE MONOHYDRATE\DEXTROSE MONOHYDRATE\DOBUTAMINE HYDROCHLORIDE\DOBUTAMINE HYDROCHLORIDE
     Indication: CARDIAC STRESS TEST
     Dosage: 10 MCG/KG
     Route: 065

REACTIONS (1)
  - Sudden cardiac death [Fatal]
